FAERS Safety Report 5732172-0 (Version None)
Quarter: 2008Q2

REPORT INFORMATION
  Report Type: 
  Country: None (occurrence: None)
  Receive Date: 20080508
  Receipt Date: 20080424
  Transmission Date: 20081010
  Serious: Yes (Hospitalization)
  Sender: FDA-Public Use
  Company Number: US-ELI_LILLY_AND_COMPANY-US200804006218

PATIENT
  Sex: Female

DRUGS (1)
  1. FORTEO [Suspect]
     Indication: PELVIC FRACTURE
     Dosage: UNK, UNK
     Dates: start: 20080101

REACTIONS (3)
  - DEHYDRATION [None]
  - PNEUMONIA [None]
  - PRESYNCOPE [None]
